FAERS Safety Report 6763473 (Version 2)
Quarter: 2013Q1

REPORT INFORMATION
  Report Type: Spontaneous
  Country: GB (occurrence: None)
  Receive Date: 20080903
  Receipt Date: 20130312
  Transmission Date: 20140127
  Serious: Yes (Congenital Anomaly)
  Sender: FDA-Public Use
  Company Number: B0460708A

PATIENT
  Sex: Male
  Weight: 2.49 kg

DRUGS (3)
  1. LAMICTAL [Suspect]
     Indication: PARTIAL SEIZURES
     Dosage: TRANSPLACENTARY
     Route: 064
  2. LEVETIRACETAM [Suspect]
     Indication: PARTIAL SEIZURES
     Dosage: TRANSPLACENTARY
     Route: 064
  3. TOPIRAMATE [Suspect]
     Indication: PARTIAL SEIZURES
     Dosage: TRANSPLACENTARY
     Route: 063

REACTIONS (5)
  - Premature baby [None]
  - Congenital anomaly [None]
  - Pyloric stenosis [None]
  - Small for dates baby [None]
  - Maternal drugs affecting foetus [None]
